FAERS Safety Report 25665507 (Version 1)
Quarter: 2025Q3

REPORT INFORMATION
  Report Type: Spontaneous
  Country: US (occurrence: None)
  Receive Date: 20250810
  Receipt Date: 20250810
  Transmission Date: 20251021
  Serious: Yes (Death)
  Sender: FDA-CTU
  Company Number: None

PATIENT
  Age: 73 Year
  Sex: Female
  Weight: 52.3 kg

DRUGS (5)
  1. TRASTUZUMAB [Suspect]
     Active Substance: TRASTUZUMAB
     Indication: Breast cancer metastatic
     Dates: start: 20250303, end: 20250726
  2. PHESGO [Suspect]
     Active Substance: HYALURONIDASE-ZZXF\PERTUZUMAB\TRASTUZUMAB
     Dates: start: 20250721, end: 20250726
  3. PERTUZUMAB [Concomitant]
     Active Substance: PERTUZUMAB
     Dates: start: 20250303, end: 20250721
  4. DOCETAXEL [Concomitant]
     Active Substance: DOCETAXEL
     Dates: start: 20250303, end: 20250721
  5. HUMAN IMMUNOGLOBULIN G [Suspect]
     Active Substance: HUMAN IMMUNOGLOBULIN G

REACTIONS (8)
  - Pneumonia [None]
  - Acute pulmonary oedema [None]
  - Pneumonitis [None]
  - Pulmonary toxicity [None]
  - Dyspnoea [None]
  - Oxygen consumption increased [None]
  - Infusion related reaction [None]
  - Toxicity to various agents [None]

NARRATIVE: CASE EVENT DATE: 20250726
